FAERS Safety Report 24746735 (Version 1)
Quarter: 2024Q4

REPORT INFORMATION
  Report Type: Spontaneous
  Country: US (occurrence: US)
  Receive Date: 20241218
  Receipt Date: 20241218
  Transmission Date: 20250115
  Serious: Yes (Hospitalization, Other)
  Sender: ZYDUS PHARM
  Company Number: US-CADILA HEALTHCARE LIMITED-US-ZYDUS-116325

PATIENT

DRUGS (9)
  1. DOXORUBICIN [Suspect]
     Active Substance: DOXORUBICIN
     Indication: Yolk sac tumour site unspecified
     Dosage: 30 MILLIGRAM/SQ. METER OVER 15 MINUTES
     Route: 042
  2. DOXORUBICIN [Suspect]
     Active Substance: DOXORUBICIN
     Indication: Testicular embryonal carcinoma
  3. DOXORUBICIN [Suspect]
     Active Substance: DOXORUBICIN
     Indication: Teratoma
  4. PACLITAXEL [Suspect]
     Active Substance: PACLITAXEL
     Indication: Yolk sac tumour site unspecified
     Dosage: 100 MILLIGRAM/SQ. METER OVER 1 HOUR
     Route: 042
  5. PACLITAXEL [Suspect]
     Active Substance: PACLITAXEL
     Indication: Testicular embryonal carcinoma
  6. PACLITAXEL [Suspect]
     Active Substance: PACLITAXEL
     Indication: Teratoma
  7. CISPLATIN [Suspect]
     Active Substance: CISPLATIN
     Indication: Yolk sac tumour site unspecified
     Dosage: 30 MILLIGRAM/SQ. METER OVER 2 HOURS
     Route: 042
  8. CISPLATIN [Suspect]
     Active Substance: CISPLATIN
     Indication: Testicular embryonal carcinoma
  9. CISPLATIN [Suspect]
     Active Substance: CISPLATIN
     Indication: Teratoma

REACTIONS (4)
  - Respiratory failure [Unknown]
  - Seizure [Unknown]
  - Diarrhoea [Unknown]
  - Drug ineffective [Unknown]
